FAERS Safety Report 16138296 (Version 1)
Quarter: 2019Q1

REPORT INFORMATION
  Report Type: Spontaneous
  Country: IT (occurrence: IT)
  Receive Date: 20190330
  Receipt Date: 20190330
  Transmission Date: 20190418
  Serious: Yes (Hospitalization)
  Sender: FDA-Public Use
  Company Number: IT-ACCORD-116440

PATIENT
  Age: 70 Year
  Sex: Male

DRUGS (12)
  1. MIRTAZAPINE. [Suspect]
     Active Substance: MIRTAZAPINE
     Indication: DEPRESSION
     Route: 048
     Dates: start: 20181212, end: 20181219
  2. HYDROCHLOROTHIAZIDE /OLMESARTAN [Suspect]
     Active Substance: HYDROCHLOROTHIAZIDE\OLMESARTAN MEDOXOMIL
     Indication: HYPERTENSION
     Dosage: 32.5 MG, QD
     Route: 048
  3. METFORMIN [Concomitant]
     Active Substance: METFORMIN HYDROCHLORIDE
     Dosage: 1700 MILLIGRAM
     Route: 048
  4. MANIDIPINE/MANIDIPINE HYDROCHLORIDE [Concomitant]
     Route: 048
  5. LIMBITRYL [Concomitant]
     Active Substance: AMITRIPTYLINE HYDROCHLORIDE\CHLORDIAZEPOXIDE HYDROCHLORIDE
     Dosage: STRENGTH:  12.5 MG / 5 MG
     Route: 048
  6. SERTRALINE [Suspect]
     Active Substance: SERTRALINE HYDROCHLORIDE
     Indication: PRODUCT USED FOR UNKNOWN INDICATION
     Dosage: 50 MILLIGRAM, QD
     Route: 048
     Dates: start: 20181212, end: 20181224
  7. ATORVASTATIN [Concomitant]
     Active Substance: ATORVASTATIN
     Dosage: 10 MILLIGRAM
     Route: 048
  8. ZOLPIDEM [Concomitant]
     Active Substance: ZOLPIDEM\ZOLPIDEM TARTRATE
  9. CARDIOASPIRIN [Concomitant]
     Active Substance: ASPIRIN
     Route: 048
  10. FISH OIL [Concomitant]
     Active Substance: FISH OIL
     Route: 048
  11. PANTOPRAZOLE [Concomitant]
     Active Substance: PANTOPRAZOLE
     Route: 048
  12. NEBIVOLOL SANDOZ [Concomitant]
     Active Substance: NEBIVOLOL
     Route: 048

REACTIONS (4)
  - Drug interaction [Unknown]
  - Confusional state [Recovering/Resolving]
  - Asthenia [Recovering/Resolving]
  - Hyponatraemia [Recovering/Resolving]

NARRATIVE: CASE EVENT DATE: 20181214
